FAERS Safety Report 6316009-7 (Version None)
Quarter: 2009Q3

REPORT INFORMATION
  Report Type: 
  Country: None (occurrence: None)
  Receive Date: 20090819
  Receipt Date: 20090819
  Transmission Date: 20100115
  Serious: Yes (Hospitalization, Other)
  Sender: FDA-Public Use
  Company Number: None

PATIENT

DRUGS (3)
  1. IFOSFAMIDE [Suspect]
     Indication: MALIGNANT MELANOMA
     Dates: start: 20090501, end: 20090813
  2. IFOSFAMIDE [Suspect]
     Indication: SARCOMA
     Dates: start: 20090501, end: 20090813
  3. IFOSFAMIDE [Suspect]

REACTIONS (2)
  - NEUROTOXICITY [None]
  - PRODUCT SUBSTITUTION ISSUE [None]
